FAERS Safety Report 4719570-9 (Version None)
Quarter: 2005Q3

REPORT INFORMATION
  Report Type: 
  Country: None (occurrence: None)
  Receive Date: 20050721
  Receipt Date: 20020702
  Transmission Date: 20060218
  Serious: No
  Sender: FDA-Public Use
  Company Number: US-GLAXOSMITHKLINE-A0373240A

PATIENT
  Age: 59 Year
  Sex: Female

DRUGS (4)
  1. AVANDIA [Suspect]
     Route: 048
     Dates: start: 20020101
  2. ACTOS [Suspect]
  3. GLYBURIDE [Concomitant]
  4. GLUCOPHAGE [Concomitant]

REACTIONS (6)
  - CHILLS [None]
  - DYSPNOEA [None]
  - HYPOGLYCAEMIA [None]
  - PARAESTHESIA [None]
  - PRESCRIBED OVERDOSE [None]
  - PYREXIA [None]
